FAERS Safety Report 15677593 (Version 1)
Quarter: 2018Q4

REPORT INFORMATION
  Report Type: Spontaneous
  Country: JP (occurrence: JP)
  Receive Date: 20181130
  Receipt Date: 20181130
  Transmission Date: 20190205
  Serious: Yes (Life-Threatening, Hospitalization, Other)
  Sender: FDA-Public Use
  Company Number: JP-BAUSCH-BL-2018-033265

PATIENT
  Age: 64 Year
  Sex: Male

DRUGS (3)
  1. PREDNISOLONE. [Suspect]
     Active Substance: PREDNISOLONE
     Indication: PROTEIN-LOSING GASTROENTEROPATHY
     Dosage: 1 MG/ KG/DAY
     Route: 065
  2. PREDNISOLONE. [Suspect]
     Active Substance: PREDNISOLONE
     Dosage: DOSE REDUCED
     Route: 065
  3. PREDNISOLONE. [Suspect]
     Active Substance: PREDNISOLONE
     Indication: CRONKHITE-CANADA SYNDROME
     Dosage: DOSE REDUCED
     Route: 065

REACTIONS (6)
  - Dermatitis [Recovered/Resolved]
  - Escherichia sepsis [Recovered/Resolved]
  - Septic shock [Recovered/Resolved]
  - Abdominal pain upper [Unknown]
  - Disseminated intravascular coagulation [Recovered/Resolved]
  - Bacterial translocation [Recovered/Resolved]
